FAERS Safety Report 8010784-1 (Version None)
Quarter: 2011Q4

REPORT INFORMATION
  Report Type: 
  Country: None (occurrence: None)
  Receive Date: 20111228
  Receipt Date: 20111219
  Transmission Date: 20120403
  Serious: Yes (Other)
  Sender: FDA-Public Use
  Company Number: US-JNJFOC-20110407940

PATIENT
  Sex: Female
  Weight: 117.94 kg

DRUGS (7)
  1. REMICADE [Suspect]
     Dosage: 3 INFUSIONS
     Route: 042
     Dates: start: 20110125
  2. SERTRALINE HYDROCHLORIDE [Concomitant]
     Indication: DEPRESSION
     Route: 048
     Dates: start: 20090101
  3. REMICADE [Suspect]
     Indication: CROHN'S DISEASE
     Route: 042
     Dates: start: 20110222
  4. REMICADE [Suspect]
     Route: 042
     Dates: start: 20110208
  5. ASACOL [Concomitant]
     Indication: CROHN'S DISEASE
     Route: 048
  6. ATENOLOL [Concomitant]
     Indication: HYPERTENSION
     Route: 048
  7. LISINOPRIL [Concomitant]
     Indication: HYPERTENSION
     Route: 048

REACTIONS (1)
  - PUSTULAR PSORIASIS [None]
